FAERS Safety Report 4345438-6 (Version None)
Quarter: 2004Q2

REPORT INFORMATION
  Report Type: 
  Country: None (occurrence: None)
  Receive Date: 20040421
  Receipt Date: 20040412
  Transmission Date: 20050107
  Serious: Yes (Other)
  Sender: FDA-Public Use
  Company Number: 2004209259BR

PATIENT

DRUGS (1)
  1. FRONTAL (ALPRAZOLAM) TABLET [Suspect]
     Indication: ANXIETY
     Dosage: 0.5 MG, QD,ORAL
     Route: 048
     Dates: start: 20031001

REACTIONS (3)
  - DRUG EXPOSURE DURING PREGNANCY [None]
  - INTRA-UTERINE DEATH [None]
  - MULTIPLE CONGENITAL ABNORMALITIES [None]
